FAERS Safety Report 16190269 (Version 2)
Quarter: 2019Q2

REPORT INFORMATION
  Report Type: Spontaneous
  Country: US (occurrence: US)
  Receive Date: 20190412
  Receipt Date: 20190520
  Transmission Date: 20190711
  Serious: No
  Sender: FDA-Public Use
  Company Number: US-PFIZER INC-2019150930

PATIENT
  Sex: Male

DRUGS (1)
  1. LATANOPROST. [Suspect]
     Active Substance: LATANOPROST
     Dosage: UNK [0.005% 125 MCG PER 2.5 ML]

REACTIONS (4)
  - Eye irritation [Unknown]
  - Product container seal issue [Unknown]
  - Poor quality product administered [Unknown]
  - Product physical consistency issue [Unknown]
